FAERS Safety Report 8028611 (Version 2)
Quarter: 2012Q4

REPORT INFORMATION
  Report Type: 
  Country: US (occurrence: US)
  Receive Date: 20110711
  Receipt Date: 20121029
  Transmission Date: 20130627
  Serious: Yes (Other)
  Sender: FDA-Public Use
  Company Number: US-ROCHE-788001

PATIENT
  Sex: Male
  Weight: 70.37 kg

DRUGS (1)
  1. ACCUTANE [Suspect]
     Indication: ACNE
     Route: 065

REACTIONS (10)
  - Inflammatory bowel disease [Unknown]
  - Depression [Unknown]
  - Suicidal ideation [Unknown]
  - Intestinal haemorrhage [Unknown]
  - Rectal haemorrhage [Unknown]
  - Arthralgia [Unknown]
  - Myalgia [Unknown]
  - Alopecia [Unknown]
  - Injury [Unknown]
  - Headache [Unknown]
